FAERS Safety Report 6312431-3 (Version None)
Quarter: 2009Q3

REPORT INFORMATION
  Report Type: 
  Country: None (occurrence: None)
  Receive Date: 20090813
  Receipt Date: 20090729
  Transmission Date: 20100115
  Serious: Yes (Death)
  Sender: FDA-Public Use
  Company Number: 8050016

PATIENT
  Age: 41 Year
  Sex: Male

DRUGS (3)
  1. KEPPRA [Suspect]
     Dosage: 1000 MG 2/D PO
     Route: 048
     Dates: start: 20090422, end: 20090716
  2. TOPIRAMATE [Concomitant]
  3. LISKANTIN [Concomitant]

REACTIONS (1)
  - ROAD TRAFFIC ACCIDENT [None]
